FAERS Safety Report 19611999 (Version 4)
Quarter: 2021Q4

REPORT INFORMATION
  Report Type: Report from Study
  Country: US (occurrence: US)
  Receive Date: 20210726
  Receipt Date: 20211013
  Transmission Date: 20220303
  Serious: Yes (Other)
  Sender: FDA-Public Use
  Company Number: US-BAYER-2021-176488

PATIENT

DRUGS (2)
  1. EYLEA [Suspect]
     Active Substance: AFLIBERCEPT
     Indication: Retinal vein occlusion
     Dosage: OD, TOTAL 3 DOSES OF EYLEA AND LAST DOSE PRIOR THE EVENT 16-MAY-2018
     Route: 031
     Dates: start: 20171115, end: 20180516
  2. EYLEA [Suspect]
     Active Substance: AFLIBERCEPT
     Indication: Macular oedema
     Dosage: UNK

REACTIONS (4)
  - Blindness [Recovered/Resolved]
  - Bacterial endophthalmitis [Recovered/Resolved]
  - Vitritis [Recovered/Resolved]
  - Wrong technique in product usage process [Recovered/Resolved]

NARRATIVE: CASE EVENT DATE: 20180516
